FAERS Safety Report 13853766 (Version 1)
Quarter: 2017Q3

REPORT INFORMATION
  Report Type: Spontaneous
  Country: TH (occurrence: TH)
  Receive Date: 20170809
  Receipt Date: 20170809
  Transmission Date: 20171127
  Serious: Yes (Death)
  Sender: FDA-Public Use
  Company Number: TH-SA-2017SA145093

PATIENT
  Age: 58 Year
  Sex: Male

DRUGS (1)
  1. THYMOGLOBULINE [Suspect]
     Active Substance: LAPINE T-LYMPHOCYTE IMMUNE GLOBULIN
     Indication: APLASTIC ANAEMIA
     Route: 042
     Dates: start: 20150130, end: 20150202

REACTIONS (7)
  - Pyrexia [Fatal]
  - Somnolence [Fatal]
  - Cardiac arrest [Fatal]
  - Wheezing [Fatal]
  - Septic shock [Fatal]
  - Febrile neutropenia [Fatal]
  - Headache [Fatal]

NARRATIVE: CASE EVENT DATE: 20150202
